FAERS Safety Report 8210995-6 (Version None)
Quarter: 2012Q1

REPORT INFORMATION
  Report Type: 
  Country: None (occurrence: None)
  Receive Date: 20120315
  Receipt Date: 20120306
  Transmission Date: 20120608
  Serious: Yes (Other)
  Sender: FDA-Public Use
  Company Number: PHHY2012DE020606

PATIENT
  Age: 14 Year
  Sex: Male

DRUGS (1)
  1. RITALIN [Suspect]
     Dosage: 10 MG, QD
     Route: 048

REACTIONS (3)
  - ALOPECIA EFFLUVIUM [None]
  - THYROIDITIS [None]
  - DELAYED PUBERTY [None]
